FAERS Safety Report 14329966 (Version 2)
Quarter: 2017Q4

REPORT INFORMATION
  Report Type: Spontaneous
  Country: US (occurrence: US)
  Receive Date: 20171227
  Receipt Date: 20171228
  Transmission Date: 20180321
  Serious: Yes (Life-Threatening, Hospitalization, Disabling, Other)
  Sender: FDA-Public Use
  Company Number: US-PFIZER INC-2017541968

PATIENT
  Age: 39 Year
  Sex: Female
  Weight: 117.9 kg

DRUGS (17)
  1. TOPAMAX [Concomitant]
     Active Substance: TOPIRAMATE
     Indication: MIGRAINE
     Dosage: 100 MG, 1X/DAY [AT NIGHT]
  2. DULERA [Concomitant]
     Active Substance: FORMOTEROL FUMARATE DIHYDRATE\MOMETASONE FUROATE
     Indication: ASTHMA
     Dosage: 2 DF, 2X/DAY
     Route: 048
  3. LYRICA [Suspect]
     Active Substance: PREGABALIN
     Indication: SEIZURE
  4. LYRICA [Suspect]
     Active Substance: PREGABALIN
     Indication: HERPES ZOSTER
  5. LYRICA [Suspect]
     Active Substance: PREGABALIN
     Indication: PAIN
  6. RESTORIL [Concomitant]
     Active Substance: TEMAZEPAM
     Indication: INSOMNIA
     Dosage: 30 MG, 1X/DAY [AT BEDTIME]
     Dates: start: 201702, end: 201708
  7. NASONEX [Concomitant]
     Active Substance: MOMETASONE FUROATE
     Dosage: 2 DF, 2X/DAY
     Route: 045
  8. LYRICA [Suspect]
     Active Substance: PREGABALIN
     Indication: POST HERPETIC NEURALGIA
  9. ATENOLOL. [Concomitant]
     Active Substance: ATENOLOL
     Indication: HYPERTENSION
     Dosage: 100 MG, 1X/DAY [AT NIGHT]
     Route: 048
     Dates: start: 2002
  10. LISINOPRIL. [Concomitant]
     Active Substance: LISINOPRIL
     Indication: HYPERTENSION
     Dosage: 20 MG, 1X/DAY [AT NIGHT]
     Route: 048
     Dates: start: 2015
  11. LYRICA [Suspect]
     Active Substance: PREGABALIN
     Indication: ARTHRALGIA
     Dosage: 150 MG, 3X/DAY
     Route: 048
     Dates: end: 201706
  12. VYVANSE [Concomitant]
     Active Substance: LISDEXAMFETAMINE DIMESYLATE
     Indication: ATTENTION DEFICIT/HYPERACTIVITY DISORDER
     Dosage: UNK
  13. IBUPROFEN. [Concomitant]
     Active Substance: IBUPROFEN
     Indication: PAIN
     Dosage: 800 MG, [3-4 TIMES A DAY]
     Route: 048
  14. FIORICET [Concomitant]
     Active Substance: ACETAMINOPHEN\BUTALBITAL\CAFFEINE
     Indication: MIGRAINE
     Dosage: UNK UNK, AS NEEDED [TAKES 1-2 EVERY 4 HOURS ]
  15. LYRICA [Suspect]
     Active Substance: PREGABALIN
     Indication: MYALGIA
     Dosage: 4 CAPSULES, FOUR TIMES A DAY
     Route: 048
  16. LYRICA [Suspect]
     Active Substance: PREGABALIN
     Indication: NEUROPATHY PERIPHERAL
     Dosage: UNK, 4X/DAY (TAKING FOUR TIMES A DAY YEARS AGO)
  17. ATENOLOL. [Concomitant]
     Active Substance: ATENOLOL
     Indication: ATRIAL FIBRILLATION

REACTIONS (20)
  - Feeling of body temperature change [Recovered/Resolved]
  - Headache [Not Recovered/Not Resolved]
  - Fungal skin infection [Recovered/Resolved]
  - Skin odour abnormal [Recovered/Resolved]
  - Fall [Unknown]
  - Feeling abnormal [Unknown]
  - Pruritus [Recovered/Resolved]
  - Rash [Recovered/Resolved]
  - Withdrawal syndrome [Unknown]
  - Anxiety [Recovered/Resolved]
  - Overweight [Unknown]
  - Insomnia [Recovered/Resolved]
  - Hyperhidrosis [Recovered/Resolved]
  - Nausea [Not Recovered/Not Resolved]
  - Pain [Not Recovered/Not Resolved]
  - Condition aggravated [Not Recovered/Not Resolved]
  - Cough [Recovered/Resolved]
  - Rhinorrhoea [Recovered/Resolved]
  - Diverticular perforation [Recovered/Resolved with Sequelae]
  - Irritability [Recovered/Resolved]

NARRATIVE: CASE EVENT DATE: 200410
